FAERS Safety Report 20669482 (Version 4)
Quarter: 2022Q2

REPORT INFORMATION
  Report Type: Report from Study
  Country: US (occurrence: US)
  Receive Date: 20220404
  Receipt Date: 20220609
  Transmission Date: 20220721
  Serious: Yes (Congenital Anomaly, Other)
  Sender: FDA-Public Use
  Company Number: US-ViiV Healthcare Limited-US2022GSK056409

PATIENT

DRUGS (5)
  1. DOLUTEGRAVIR [Suspect]
     Active Substance: DOLUTEGRAVIR
     Indication: HIV infection
     Dosage: 50 MG, QD
     Route: 064
     Dates: start: 20140624
  2. DOLUTEGRAVIR SODIUM\LAMIVUDINE [Suspect]
     Active Substance: DOLUTEGRAVIR SODIUM\LAMIVUDINE
     Indication: HIV infection
     Dosage: 500 MG, QD
     Route: 064
     Dates: start: 20170127
  3. FOLATE SUPPLEMENT [Concomitant]
     Indication: Product used for unknown indication
     Route: 064
  4. ZOFRAN [Concomitant]
     Active Substance: ONDANSETRON HYDROCHLORIDE
     Indication: Product used for unknown indication
     Route: 064
  5. IRON [Concomitant]
     Active Substance: IRON
     Indication: Product used for unknown indication
     Route: 064

REACTIONS (5)
  - Atrial septal defect [Unknown]
  - Patent ductus arteriosus [Unknown]
  - Atrial septal defect [Unknown]
  - Deafness [Unknown]
  - Premature baby [Unknown]

NARRATIVE: CASE EVENT DATE: 20211025
